FAERS Safety Report 7764290-X (Version None)
Quarter: 2011Q3

REPORT INFORMATION
  Report Type: 
  Country: None (occurrence: None)
  Receive Date: 20110920
  Receipt Date: 20110920
  Transmission Date: 20111222
  Serious: Yes (Hospitalization)
  Sender: FDA-Public Use
  Company Number: None

PATIENT
  Age: 66 Year
  Sex: Male
  Weight: 89.4 kg

DRUGS (1)
  1. FUROSEMIDE [Suspect]
     Dates: start: 20110608

REACTIONS (4)
  - BLOOD POTASSIUM DECREASED [None]
  - HYPOVOLAEMIA [None]
  - HYPOMAGNESAEMIA [None]
  - FLUID INTAKE REDUCED [None]
